FAERS Safety Report 7523699-X (Version None)
Quarter: 2011Q2

REPORT INFORMATION
  Report Type: 
  Country: None (occurrence: None)
  Receive Date: 20110603
  Receipt Date: 20110525
  Transmission Date: 20111010
  Serious: Yes (Other)
  Sender: FDA-Public Use
  Company Number: US-ASTRAZENECA-2008UW23605

PATIENT
  Age: 51 Year
  Sex: Female
  Weight: 61.2 kg

DRUGS (3)
  1. LUPRON [Concomitant]
  2. ARIMIDEX [Suspect]
     Indication: BREAST CANCER
     Route: 048
  3. SYNTHROID [Concomitant]

REACTIONS (4)
  - MENOPAUSAL SYMPTOMS [None]
  - HOT FLUSH [None]
  - HAEMORRHAGE [None]
  - RASH [None]
